FAERS Safety Report 4850565-0 (Version None)
Quarter: 2005Q4

REPORT INFORMATION
  Report Type: 
  Country: None (occurrence: None)
  Receive Date: 20051212
  Receipt Date: 20051130
  Transmission Date: 20060501
  Serious: Yes (Life-Threatening)
  Sender: FDA-Public Use
  Company Number: JP-BOEHRINGER INGELHEIM PHARMACEUTICALS, INC.-2005-BP-20793NB

PATIENT
  Sex: Male

DRUGS (6)
  1. MOBIC [Suspect]
     Route: 048
     Dates: start: 20050809, end: 20051102
  2. ODYNE [Suspect]
     Indication: PROSTATE CANCER
     Route: 048
     Dates: start: 20050809, end: 20051005
  3. ADEFURONIC [Suspect]
     Route: 048
     Dates: start: 20050809, end: 20051102
  4. VONAFEC [Suspect]
     Dates: start: 20050903
  5. MOSAPRIDE CITRATE [Concomitant]
     Route: 048
     Dates: start: 20050804, end: 20051102
  6. TAMSULOSIN HCL [Concomitant]
     Route: 048
     Dates: start: 20050809, end: 20051102

REACTIONS (8)
  - ABDOMINAL PAIN [None]
  - APLASTIC ANAEMIA [None]
  - FLATULENCE [None]
  - HAEMOLYTIC ANAEMIA [None]
  - HERPES VIRUS INFECTION [None]
  - METASTASES TO BONE [None]
  - PYREXIA [None]
  - VOMITING [None]
